FAERS Safety Report 14965651 (Version 6)
Quarter: 2022Q1

REPORT INFORMATION
  Report Type: Spontaneous
  Country: PT (occurrence: PT)
  Receive Date: 20180602
  Receipt Date: 20220315
  Transmission Date: 20220423
  Serious: Yes (Hospitalization, Other)
  Sender: FDA-Public Use
  Company Number: PT-AUROBINDO-AUR-APL-2018-029586

PATIENT
  Age: 26 Year
  Sex: Male

DRUGS (21)
  1. SPIRONOLACTONE [Suspect]
     Active Substance: SPIRONOLACTONE
     Indication: Product used for unknown indication
     Dosage: ON THE DAY OF COMPETITION
     Route: 065
  2. ANASTROZOLE [Suspect]
     Active Substance: ANASTROZOLE
     Indication: Performance enhancing product use
     Dosage: 1 MG  ID, 6 WEEKS CYCLE BEFORE THE COMPETITION
     Route: 048
  3. STANOZOLOL [Suspect]
     Active Substance: STANOZOLOL
     Indication: Performance enhancing product use
     Dosage: 40 MG ID, 6 WEEKS CYCLE BEFORE THE COMPETITION
     Route: 065
  4. LIOTHYRONINE [Suspect]
     Active Substance: LIOTHYRONINE
     Indication: Performance enhancing product use
     Dosage: 25 MCG BID, 6 WEEKS CYCLE BEFORE THE COMPETITION
     Route: 065
  5. DROMOSTANOLONE PROPIONATE [Suspect]
     Active Substance: DROMOSTANOLONE PROPIONATE
     Indication: Performance enhancing product use
     Dosage: 100 MG EVERY OTHER DAY, 6 WEEKS CYCLE BEFORE THE COMPETITION
     Route: 065
  6. CLENBUTEROL [Suspect]
     Active Substance: CLENBUTEROL
     Indication: Performance enhancing product use
     Dosage: TID, 6 WEEKS CYCLE BEFORE THE COMPETITION
     Route: 065
  7. TESTOSTERONE [Suspect]
     Active Substance: TESTOSTERONE
     Indication: Performance enhancing product use
     Dosage: 250 MILLIGRAM, ONCE A DAY
     Route: 065
  8. TESTOSTERONE [Suspect]
     Active Substance: TESTOSTERONE
     Dosage: 500 MILLIGRAM, EVERY WEEK
     Route: 065
  9. LEVOTHYROXINE [Suspect]
     Active Substance: LEVOTHYROXINE
     Indication: Performance enhancing product use
     Dosage: 100 MCG ID, 6 WEEKS CYCLE BEFORE THE COMPETITION
     Route: 065
  10. TESTOSTERONE [Suspect]
     Active Substance: TESTOSTERONE
     Indication: Product used for unknown indication
     Dosage: 1200MG/WK, 6 WEEKS CYCLE BEFORE THE COMPETITION ()
     Route: 065
  11. TESTOSTERONE [Suspect]
     Active Substance: TESTOSTERONE
     Dosage: 250 MG TWICE WEEKLY, 6 WEEKS CYCLE BEFORE THE COMPETITION
     Route: 065
  12. TESTOSTERONE [Suspect]
     Active Substance: TESTOSTERONE
     Dosage: 500 MG, QW,MG/WK 6 WEEKS CYCLE BEFORE THE COMPETITION
  13. MESTEROLONE [Suspect]
     Active Substance: MESTEROLONE
     Indication: Performance enhancing product use
     Dosage: 25 MG 4-6ID, 6 WEEKS CYCLE BEFORE THE COMPETITION ()
     Route: 065
  14. VITAMINS [Suspect]
     Active Substance: VITAMINS
     Indication: Product used for unknown indication
     Dosage: 6 WEEKS CYCLE BEFORE THE COMPETITION ()
     Route: 065
  15. TESTOSTERONE [Suspect]
     Active Substance: TESTOSTERONE
     Indication: Performance enhancing product use
     Dosage: 500 MG/WK 6 WEEKS CYCLE BEFORE THE COMPETITION ()
     Route: 065
  16. CABERGOLINE [Suspect]
     Active Substance: CABERGOLINE
     Indication: Performance enhancing product use
     Dosage: 0.25 MG EVERY OTHER DAY, 6 WEEKS CYCLE BEFORE THE COMPETITION
     Route: 065
  17. FLUOXYMESTERONE [Suspect]
     Active Substance: FLUOXYMESTERONE
     Indication: Performance enhancing product use
     Dosage: 75 MG ID, 6 WEEKS CYCLE BEFORE THE COMPETITION
     Route: 065
  18. ALTHIAZIDE [Suspect]
     Active Substance: ALTHIAZIDE
     Indication: Product used for unknown indication
     Dosage: ON THE DAY OF COMPETITION
     Route: 065
  19. TRENBOLONE [Suspect]
     Active Substance: TRENBOLONE
     Indication: Performance enhancing product use
     Dosage: 100 MG EVERY OTHER DAY, 6 WEEKS CYCLE BEFORE THE COMPETITION
     Route: 065
  20. TESTOSTERONE ENANTHATE [Suspect]
     Active Substance: TESTOSTERONE ENANTHATE
     Indication: Product used for unknown indication
     Dosage: 250 MG ID, 6 WEEKS CYCLE BEFORE THE COMPETITION
     Route: 065
  21. BOLDENONE [Suspect]
     Active Substance: BOLDENONE

REACTIONS (11)
  - Diabetes mellitus [Recovered/Resolved]
  - Autoimmune thyroiditis [Recovered/Resolved]
  - Secondary hypogonadism [Recovered/Resolved]
  - Drug abuse [Unknown]
  - Blood glucose increased [Unknown]
  - Glucose tolerance decreased [Unknown]
  - Performance enhancing product use [Unknown]
  - Off label use [Unknown]
  - Product use in unapproved indication [Unknown]
  - Haematocrit increased [Unknown]
  - Product use issue [Unknown]
